FAERS Safety Report 8583335-0 (Version None)
Quarter: 2012Q3

REPORT INFORMATION
  Report Type: 
  Country: None (occurrence: None)
  Receive Date: 20120809
  Receipt Date: 20120731
  Transmission Date: 20120928
  Serious: Yes (Other)
  Sender: FDA-Public Use
  Company Number: JP-ABBOTT-12P-087-0963476-00

PATIENT
  Age: 4 Year
  Sex: Female

DRUGS (6)
  1. CLONAZEPAM [Suspect]
     Indication: LENNOX-GASTAUT SYNDROME
     Route: 065
  2. TOPIRAMATE [Suspect]
     Indication: LENNOX-GASTAUT SYNDROME
     Route: 065
  3. VALPROIC ACID [Suspect]
     Indication: LENNOX-GASTAUT SYNDROME
     Route: 065
  4. CLOBAZAM [Suspect]
     Indication: LENNOX-GASTAUT SYNDROME
     Route: 065
  5. LAMOTRIGINE [Suspect]
     Indication: LENNOX-GASTAUT SYNDROME
     Route: 065
  6. NITRAZEPAM [Concomitant]
     Indication: PRODUCT USED FOR UNKNOWN INDICATION

REACTIONS (3)
  - CONVULSION [None]
  - DRUG INEFFECTIVE [None]
  - FALL [None]
